FAERS Safety Report 7599675-8 (Version None)
Quarter: 2011Q3

REPORT INFORMATION
  Report Type: 
  Country: None (occurrence: None)
  Receive Date: 20110711
  Receipt Date: 20110627
  Transmission Date: 20111222
  Serious: Yes (Other)
  Sender: FDA-Public Use
  Company Number: GB-ELI_LILLY_AND_COMPANY-GB200711003800

PATIENT
  Sex: Female
  Weight: 2.23 kg

DRUGS (8)
  1. FLUOXETINE [Suspect]
     Dosage: 10 MG, UNKNOWN
     Route: 064
  2. BUDESONIDE [Concomitant]
     Indication: ASTHMA
     Dosage: 1 D/F, 2/D
     Route: 064
     Dates: start: 20051001
  3. ALBUTEROL [Concomitant]
     Dosage: UNK, UNKNOWN
     Route: 064
     Dates: start: 20051001
  4. FLUOXETINE [Suspect]
     Indication: DEPRESSION
     Dosage: 10 MG, UNKNOWN
     Route: 064
  5. FORMOTEROL FUMARATE [Concomitant]
     Indication: ASTHMA
     Dosage: 1 D/F, 2/D
     Route: 064
     Dates: start: 20051001
  6. BUDESONIDE [Concomitant]
     Dosage: 1 D/F, 2/D
     Route: 064
     Dates: start: 20051001
  7. FORMOTEROL FUMARATE [Concomitant]
     Dosage: 1 D/F, 2/D
     Route: 064
     Dates: start: 20051001
  8. ALBUTEROL [Concomitant]
     Indication: ASTHMA
     Dosage: UNK, UNKNOWN
     Route: 064
     Dates: start: 20051001

REACTIONS (2)
  - SEPSIS [None]
  - MATERNAL EXPOSURE DURING PREGNANCY [None]
